FAERS Safety Report 5319552-2 (Version None)
Quarter: 2007Q2

REPORT INFORMATION
  Report Type: 
  Country: None (occurrence: None)
  Receive Date: 20070508
  Receipt Date: 20070430
  Transmission Date: 20071010
  Serious: Yes (Hospitalization, Other)
  Sender: FDA-Public Use
  Company Number: FR-ELI_LILLY_AND_COMPANY-FR200703006243

PATIENT
  Age: 77 Year
  Sex: Female

DRUGS (3)
  1. FORTEO [Suspect]
     Indication: OSTEOPOROSIS
     Dosage: 20 UG, DAILY (1/D)
     Route: 058
     Dates: start: 20060927, end: 20070406
  2. FORTEO [Suspect]
     Dosage: 20 UG, DAILY (1/D)
     Route: 058
     Dates: start: 20070408, end: 20070423
  3. FLECAINIDE ACETATE [Concomitant]
     Indication: EXTRASYSTOLES

REACTIONS (4)
  - ANAEMIA [None]
  - COLONIC POLYP [None]
  - DYSPNOEA [None]
  - FATIGUE [None]
